FAERS Safety Report 5271778-2 (Version None)
Quarter: 2007Q1

REPORT INFORMATION
  Report Type: 
  Country: None (occurrence: None)
  Receive Date: 20070321
  Receipt Date: 20070306
  Transmission Date: 20070707
  Serious: Yes (Other)
  Sender: FDA-Public Use
  Company Number: US-AMGEN-KDL204864

PATIENT
  Sex: Male

DRUGS (2)
  1. ENBREL [Suspect]
     Indication: PSORIATIC ARTHROPATHY
     Route: 058
     Dates: start: 20040311
  2. ENBREL [Suspect]
     Indication: PSORIASIS

REACTIONS (3)
  - CONTUSION [None]
  - CORONARY ARTERY OCCLUSION [None]
  - SKIN EXFOLIATION [None]
